FAERS Safety Report 4348851-6 (Version None)
Quarter: 2004Q1

REPORT INFORMATION
  Report Type: 
  Country: None (occurrence: None)
  Receive Date: 20040325
  Receipt Date: 20040216
  Transmission Date: 20041129
  Serious: No
  Sender: FDA-Public Use
  Company Number: USA040259512

PATIENT
  Age: 53 Year
  Sex: Male

DRUGS (2)
  1. FORTEO [Suspect]
     Indication: OSTEOPOROSIS
     Dates: start: 20031101
  2. ETHAMBUTOL [Concomitant]

REACTIONS (2)
  - COLOUR BLINDNESS [None]
  - VISUAL DISTURBANCE [None]
